FAERS Safety Report 25654897 (Version 1)
Quarter: 2025Q3

REPORT INFORMATION
  Report Type: Spontaneous
  Country: US (occurrence: US)
  Receive Date: 20250807
  Receipt Date: 20250807
  Transmission Date: 20251020
  Serious: No
  Sender: BAYER HEALTHCARE LLC
  Company Number: US-BAYER-2025A104643

PATIENT
  Age: 83 Year
  Sex: Male

DRUGS (1)
  1. MIRALAX [Suspect]
     Active Substance: POLYETHYLENE GLYCOL 3350
     Indication: Colon operation
     Dosage: 234G OF MIRALAX MIXED IN FOUR 8-OZ GLASSES OF LIQUID
     Route: 048
     Dates: end: 20250806

REACTIONS (1)
  - Product prescribing issue [Unknown]
